FAERS Safety Report 5466781-3 (Version None)
Quarter: 2007Q3

REPORT INFORMATION
  Report Type: 
  Country: None (occurrence: None)
  Receive Date: 20070925
  Receipt Date: 20070914
  Transmission Date: 20080115
  Serious: Yes (Death, Hospitalization, Other)
  Sender: FDA-Public Use
  Company Number: CH-ELI_LILLY_AND_COMPANY-CH200702004481

PATIENT
  Sex: Male

DRUGS (1)
  1. ZYPREXA [Suspect]
     Dosage: UNK MG, UNK
     Dates: start: 20061101

REACTIONS (4)
  - HEPATIC INFECTION [None]
  - MYOCARDIAL INFARCTION [None]
  - OEDEMA [None]
  - OVERDOSE [None]
